FAERS Safety Report 7407909 (Version 7)
Quarter: 2013Q2

REPORT INFORMATION
  Report Type: Spontaneous
  Country: US (occurrence: US)
  Receive Date: 20100603
  Receipt Date: 20130417
  Transmission Date: 20140414
  Serious: Yes (Hospitalization, Other)
  Sender: FDA-Public Use
  Company Number: US-BIOGENIDEC-2010BI017197

PATIENT
  Age: 61 Year
  Sex: Female
  Weight: 102 kg

DRUGS (8)
  1. AVONEX [Suspect]
     Indication: MULTIPLE SCLEROSIS
     Route: 030
     Dates: start: 20040816, end: 20091201
  2. AVONEX [Suspect]
     Indication: MULTIPLE SCLEROSIS
     Route: 030
     Dates: start: 201104
  3. TRIMODOL (NOS) (PRESUMED TRAMADOL) [Concomitant]
     Indication: PREMEDICATION
  4. TRIMODOL (NOS) (PRESUMED TRAMADOL) [Concomitant]
     Indication: CARTILAGE INJURY
  5. LISINOPRIL [Concomitant]
     Indication: CARDIAC FAILURE CONGESTIVE
     Route: 048
  6. LISINOPRIL [Concomitant]
     Indication: ATRIAL FIBRILLATION
     Route: 048
  7. LISINOPRIL [Concomitant]
     Indication: INTRACARDIAC THROMBUS
     Route: 048
  8. LISINOPRIL [Concomitant]
     Indication: HYPERTENSION
     Route: 048

REACTIONS (16)
  - Cardiac failure congestive [Recovered/Resolved]
  - Cardiac arrest [Recovered/Resolved]
  - Intracardiac thrombus [Recovered/Resolved]
  - Atrial fibrillation [Recovered/Resolved]
  - Thrombosis [Unknown]
  - Cardiomegaly [Unknown]
  - Insomnia [Not Recovered/Not Resolved]
  - Bronchitis [Recovered/Resolved]
  - Heart rate decreased [Recovered/Resolved]
  - Hypoaesthesia [Recovered/Resolved]
  - Fall [Recovered/Resolved]
  - Cartilage injury [Not Recovered/Not Resolved]
  - Nuclear magnetic resonance imaging abnormal [Unknown]
  - Accidental overdose [Unknown]
  - Fatigue [Recovered/Resolved]
  - Influenza like illness [Recovered/Resolved]
